FAERS Safety Report 25571023 (Version 1)
Quarter: 2025Q3

REPORT INFORMATION
  Report Type: Spontaneous
  Country: US (occurrence: US)
  Receive Date: 20250717
  Receipt Date: 20250717
  Transmission Date: 20251021
  Serious: No
  Sender: GLAXOSMITHKLINE
  Company Number: US-GSK-US2025AMR083093

PATIENT

DRUGS (4)
  1. NUCALA [Suspect]
     Active Substance: MEPOLIZUMAB
     Indication: Peripheral arterial occlusive disease
  2. NUCALA [Suspect]
     Active Substance: MEPOLIZUMAB
     Indication: Intermittent claudication
  3. NUCALA [Suspect]
     Active Substance: MEPOLIZUMAB
     Indication: Oral candidiasis
  4. NUCALA [Suspect]
     Active Substance: MEPOLIZUMAB
     Indication: Aortic aneurysm

REACTIONS (1)
  - Off label use [Unknown]
